FAERS Safety Report 5635775-7 (Version None)
Quarter: 2008Q1

REPORT INFORMATION
  Report Type: 
  Country: None (occurrence: None)
  Receive Date: 20080221
  Receipt Date: 20080212
  Transmission Date: 20080703
  Serious: Yes (Other)
  Sender: FDA-Public Use
  Company Number: 008-C5013-08020602

PATIENT
  Age: 50 Year
  Sex: Male
  Weight: 51.7101 kg

DRUGS (9)
  1. CC-5013 (LENALIDOMIDE) (CAPSULES) [Suspect]
     Indication: MULTIPLE MYELOMA
     Dosage: 25 MG, DAILY, ORAL
     Route: 048
     Dates: start: 20070501, end: 20070613
  2. CC-5013 (LENALIDOMIDE) (CAPSULES) [Suspect]
     Indication: MULTIPLE MYELOMA
     Dosage: 25 MG, DAILY, ORAL
     Route: 048
     Dates: start: 20070830
  3. DEXAMETHASONE TAB [Suspect]
     Indication: MULTIPLE MYELOMA
     Dosage: 40 MG, ORAL
     Route: 048
     Dates: start: 20070501, end: 20070613
  4. DEXAMETHASONE TAB [Suspect]
     Indication: MULTIPLE MYELOMA
     Dosage: 40 MG, ORAL
     Route: 048
     Dates: start: 20070830
  5. AMLODIPINE [Concomitant]
  6. AMITRIPTYLINE HCL [Concomitant]
  7. PANTOPRAZOLE SODIUM [Concomitant]
  8. TIMOLOL MALEATE [Concomitant]
  9. ACETAMINOPHEN [Concomitant]

REACTIONS (2)
  - COLON CANCER [None]
  - TUMOUR ULCERATION [None]
